FAERS Safety Report 17640578 (Version 1)
Quarter: 2020Q2

REPORT INFORMATION
  Report Type: Other
  Country: US (occurrence: US)
  Receive Date: 20200408
  Receipt Date: 20200408
  Transmission Date: 20200713
  Serious: Yes (Other)
  Sender: FDA-Public Use
  Company Number: US-INTERCEPT-PM2020000882

PATIENT
  Sex: Female

DRUGS (2)
  1. OCALIVA [Suspect]
     Active Substance: OBETICHOLIC ACID
     Indication: PRIMARY BILIARY CHOLANGITIS
     Dosage: 5 MG, QD
     Route: 048
     Dates: start: 20170927
  2. OCALIVA [Suspect]
     Active Substance: OBETICHOLIC ACID
     Dosage: 10 MG, QD
     Route: 048

REACTIONS (3)
  - Sepsis [Recovered/Resolved]
  - Immunodeficiency [Recovered/Resolved]
  - Influenza [Recovered/Resolved]

NARRATIVE: CASE EVENT DATE: 2020
